FAERS Safety Report 14991748 (Version 1)
Quarter: 2018Q2

REPORT INFORMATION
  Report Type: Spontaneous
  Country: DE (occurrence: DE)
  Receive Date: 20180608
  Receipt Date: 20180608
  Transmission Date: 20180711
  Serious: Yes (Death, Hospitalization)
  Sender: FDA-Public Use
  Company Number: DE-TEVA-2018-DE-902218

PATIENT
  Age: 72 Year
  Sex: Female

DRUGS (8)
  1. PIPAMPERON [Interacting]
     Active Substance: PIPAMPERONE HYDROCHLORIDE
     Dosage: 0-0-0-1
  2. LYRICA [Interacting]
     Active Substance: PREGABALIN
     Dosage: 1-0-3-0
  3. SIMVASTATIN. [Interacting]
     Active Substance: SIMVASTATIN
     Dosage: 0-0-1-0
  4. CITALOPRAM [Suspect]
     Active Substance: CITALOPRAM HYDROBROMIDE
     Dosage: 1-0-0-0
     Route: 065
  5. ELIQUIS [Interacting]
     Active Substance: APIXABAN
     Dosage: 1-0-1-0
     Route: 065
  6. KALINOR /00279301/ [Interacting]
     Active Substance: CITRIC ACID MONOHYDRATE\POTASSIUM BICARBONATE\POTASSIUM CITRATE
     Dosage: 1-0-0-0,
  7. DIGIMERCK [Interacting]
     Active Substance: DIGITOXIN
     Dosage: 0-1-0-0
  8. METOPROLOL. [Interacting]
     Active Substance: METOPROLOL
     Dosage: 0.5-0-0.5-0

REACTIONS (8)
  - Drug prescribing error [Fatal]
  - Cerebrospinal fluid retention [Fatal]
  - Reflexes abnormal [Fatal]
  - Cerebral ventricular rupture [Fatal]
  - Labelled drug-drug interaction medication error [Fatal]
  - Wrong drug administered [Fatal]
  - Cerebellar infarction [Fatal]
  - Coma [Fatal]
